FAERS Safety Report 10272655 (Version 1)
Quarter: 2014Q3

REPORT INFORMATION
  Report Type: Spontaneous
  Country: GB (occurrence: GB)
  Receive Date: 20140702
  Receipt Date: 20140702
  Transmission Date: 20150326
  Serious: Yes (Other)
  Sender: FDA-Public Use
  Company Number: PHFR2014GB004495

PATIENT
  Sex: Female

DRUGS (1)
  1. GILENYA [Suspect]
     Active Substance: FINGOLIMOD HYDROCHLORIDE

REACTIONS (5)
  - Multiple sclerosis relapse [Unknown]
  - Immune thrombocytopenic purpura [Unknown]
  - Arthralgia [Unknown]
  - Fatigue [Unknown]
  - Congenital thrombocyte disorder [Unknown]
